FAERS Safety Report 6880757-0 (Version None)
Quarter: 2010Q3

REPORT INFORMATION
  Report Type: 
  Country: None (occurrence: None)
  Receive Date: 20100728
  Receipt Date: 20100715
  Transmission Date: 20110219
  Serious: Yes (Hospitalization)
  Sender: FDA-Public Use
  Company Number: US-BAYER-201018161BCC

PATIENT
  Age: 73 Year
  Sex: Female
  Weight: 82 kg

DRUGS (17)
  1. ALEVE (CAPLET) [Suspect]
     Indication: ROTATOR CUFF SYNDROME
     Route: 048
  2. LEVOTHYROXINE [Concomitant]
  3. AMLODIPINE [Concomitant]
  4. OMEPRAZOLE [Concomitant]
  5. CRESTOR [Concomitant]
  6. TRILIPIX [Concomitant]
  7. ALENDRONATE SODIUM [Concomitant]
  8. PREMARIN [Concomitant]
  9. ZYRTEC [Concomitant]
  10. ASPIRIN [Concomitant]
  11. ASPIRIN [Concomitant]
  12. CITRACAL PLUS VITAMIN D MAXIMUM [Concomitant]
  13. CENTRUM SILVER [Concomitant]
  14. GLUCOSAMINE AND CHONDROITIN [Concomitant]
  15. OCCUVITE WITH LUTEIN [Concomitant]
  16. FLAXSEED OIL [Concomitant]
  17. FLONASE [Concomitant]

REACTIONS (3)
  - ABDOMINAL DISCOMFORT [None]
  - CHEST DISCOMFORT [None]
  - SUPRAVENTRICULAR EXTRASYSTOLES [None]
